FAERS Safety Report 8016858-3 (Version None)
Quarter: 2012Q1

REPORT INFORMATION
  Report Type: 
  Country: None (occurrence: None)
  Receive Date: 20120102
  Receipt Date: 20111221
  Transmission Date: 20120608
  Serious: Yes (Hospitalization, Other)
  Sender: FDA-Public Use
  Company Number: PHHY2011BE110229

PATIENT
  Age: 46 Year
  Sex: Female

DRUGS (14)
  1. DAPSONE [Interacting]
     Indication: GRAFT VERSUS HOST DISEASE
     Dosage: 50 MG, BID
     Route: 048
  2. REPAGLINIDE [Concomitant]
     Indication: DIABETES MELLITUS
     Dosage: 2 MG, QD
     Dates: start: 20110801, end: 20110913
  3. TASIGNA [Suspect]
     Indication: BLAST CRISIS IN MYELOGENOUS LEUKAEMIA
     Dosage: 800 MG
     Dates: start: 20080812, end: 20110913
  4. ESTREVA [Concomitant]
  5. AACIFEMINE [Concomitant]
     Indication: HORMONE REPLACEMENT THERAPY
     Dosage: 2 MG, 5 DAYS/WEEK
     Route: 048
     Dates: start: 20090801, end: 20110913
  6. BACTRIM [Concomitant]
     Indication: PROPHYLAXIS
     Dosage: 0.5 DF, QD
     Dates: start: 20110101, end: 20110913
  7. LUTENYL [Concomitant]
     Indication: HORMONE REPLACEMENT THERAPY
     Dosage: 5 MG, 15 DAYS/MONTH
     Route: 048
     Dates: start: 20061001, end: 20110913
  8. MEDROL [Concomitant]
     Indication: BRONCHIAL DISORDER
     Dosage: 64 MG, ONCE DAILY
     Route: 048
     Dates: start: 20110816
  9. PROGRAF [Concomitant]
     Dosage: 0.5 MG, BID
     Route: 048
     Dates: start: 20080101
  10. SYMBICORT [Concomitant]
     Dosage: 2 INHALATIONS TWICE DAILY
  11. ESTREVA [Concomitant]
     Indication: HORMONE REPLACEMENT THERAPY
     Dosage: 0.5 MG, 4 TIMES DAILY
     Dates: start: 20061001, end: 20110913
  12. ZOVIRAX [Concomitant]
     Indication: PROPHYLAXIS
     Dosage: 400 MG, BID
     Route: 048
     Dates: start: 20110101
  13. MOXON [Concomitant]
     Indication: HYPERTENSION
     Dosage: 0.4 MG, QD
     Route: 048
     Dates: start: 20101101
  14. SIPRALEXA [Concomitant]
     Indication: DEPRESSION
     Dosage: 10 MG, QD
     Dates: start: 20101001

REACTIONS (27)
  - RASH [None]
  - HYPERGLYCAEMIA [None]
  - GRAFT VERSUS HOST DISEASE [None]
  - HAEMOLYSIS [None]
  - LIVER DISORDER [None]
  - DYSPNOEA [None]
  - RENAL FAILURE [None]
  - JAUNDICE [None]
  - CARDIOMEGALY [None]
  - DRUG INTERACTION [None]
  - LUNG DISORDER [None]
  - FATIGUE [None]
  - SYNCOPE [None]
  - OEDEMA PERIPHERAL [None]
  - TREMOR [None]
  - RESPIRATORY FAILURE [None]
  - RESPIRATORY DISORDER [None]
  - HEADACHE [None]
  - CHEST PAIN [None]
  - RASH PAPULAR [None]
  - PULMONARY HAEMORRHAGE [None]
  - PLEURAL EFFUSION [None]
  - LEFT VENTRICULAR FAILURE [None]
  - TEARFULNESS [None]
  - DIARRHOEA [None]
  - FLUID OVERLOAD [None]
  - PERICARDIAL EFFUSION [None]
